FAERS Safety Report 14309642 (Version 2)
Quarter: 2017Q4

REPORT INFORMATION
  Report Type: Spontaneous
  Country: ES (occurrence: ES)
  Receive Date: 20171220
  Receipt Date: 20171222
  Transmission Date: 20180321
  Serious: Yes (Other)
  Sender: FDA-Public Use
  Company Number: ES-PFIZER INC-2017537435

PATIENT
  Age: 84 Year
  Sex: Female

DRUGS (5)
  1. METAMIZOL [Interacting]
     Active Substance: METAMIZOLE SODIUM
     Dosage: UNK
     Route: 048
     Dates: start: 20171123, end: 20171123
  2. TRAMADOL. [Interacting]
     Active Substance: TRAMADOL
     Dosage: UNK
     Route: 048
     Dates: start: 20171123, end: 20171123
  3. DEXCLORFENIRAMINA [Interacting]
     Active Substance: DEXCHLORPHENIRAMINE
     Dosage: UNK
     Route: 048
     Dates: start: 20171123, end: 20171123
  4. GABAPENTINA [Suspect]
     Active Substance: GABAPENTIN
     Dosage: UNK
     Route: 048
     Dates: start: 20171123, end: 20171123
  5. FUROSEMIDA /00032601/ [Interacting]
     Active Substance: FUROSEMIDE
     Dosage: UNK
     Route: 048
     Dates: start: 20171123, end: 20171123

REACTIONS (5)
  - Hypotension [Unknown]
  - Wrong patient received medication [Recovered/Resolved]
  - Drug interaction [Unknown]
  - Somnolence [Unknown]
  - Fall [Unknown]

NARRATIVE: CASE EVENT DATE: 20171123
